FAERS Safety Report 15820267 (Version 1)
Quarter: 2019Q1

REPORT INFORMATION
  Report Type: Spontaneous
  Country: US (occurrence: US)
  Receive Date: 20190114
  Receipt Date: 20190114
  Transmission Date: 20190417
  Serious: No
  Sender: FDA-Public Use
  Company Number: US-SHIRE-US201901237

PATIENT
  Age: 51 Year
  Sex: Female

DRUGS (1)
  1. NATPARA (PARATHYROID HORMONE) [Suspect]
     Active Substance: PARATHYROID HORMONE
     Indication: HYPOPARATHYROIDISM
     Dosage: 50 ?G, LESS THAN ONCE DAILY
     Route: 058
     Dates: start: 20180809

REACTIONS (4)
  - Arthralgia [Recovering/Resolving]
  - Constipation [Recovering/Resolving]
  - Dark circles under eyes [Recovering/Resolving]
  - Off label use [Recovered/Resolved with Sequelae]

NARRATIVE: CASE EVENT DATE: 20181206
